FAERS Safety Report 6971894-0 (Version None)
Quarter: 2010Q3

REPORT INFORMATION
  Report Type: 
  Country: None (occurrence: None)
  Receive Date: 20100908
  Receipt Date: 20100908
  Transmission Date: 20110219
  Serious: Yes (Hospitalization)
  Sender: FDA-Public Use
  Company Number: None

PATIENT
  Sex: Female
  Weight: 66.5 kg

DRUGS (2)
  1. TAXOL [Suspect]
     Dosage: 308 MG
     Dates: end: 20100811
  2. TOPOTECAN [Suspect]
     Dosage: 3.96 MG
     Dates: end: 20100813

REACTIONS (2)
  - CHOLELITHIASIS [None]
  - PANCREATITIS ACUTE [None]
